FAERS Safety Report 7078216-8 (Version None)
Quarter: 2010Q4

REPORT INFORMATION
  Report Type: 
  Country: None (occurrence: None)
  Receive Date: 20101102
  Receipt Date: 20101025
  Transmission Date: 20110411
  Serious: Yes (Other)
  Sender: FDA-Public Use
  Company Number: US-TEVA-252801USA

PATIENT
  Age: 42 Year
  Sex: Female

DRUGS (4)
  1. FLUOROURACIL [Suspect]
     Indication: RECTAL CANCER
     Dates: start: 20101014, end: 20101014
  2. FOLINIC ACID [Suspect]
     Indication: RECTAL CANCER
     Dates: start: 20101014, end: 20101014
  3. BEVACIZUMAB [Suspect]
     Dates: start: 20101014, end: 20101014
  4. OXALIPLATIN [Suspect]
     Indication: RECTAL CANCER
     Dates: start: 20101014, end: 20101014

REACTIONS (2)
  - HAEMORRHAGE [None]
  - IDIOPATHIC THROMBOCYTOPENIC PURPURA [None]
